FAERS Safety Report 4973913-X (Version None)
Quarter: 2006Q2

REPORT INFORMATION
  Report Type: 
  Country: None (occurrence: None)
  Receive Date: 20060410
  Receipt Date: 20060327
  Transmission Date: 20061013
  Serious: Yes (Hospitalization, Other)
  Sender: FDA-Public Use
  Company Number: HQWYE553928MAR06

PATIENT
  Age: 66 Hour
  Sex: Male
  Weight: 77.18 kg

DRUGS (4)
  1. EFFEXOR XR [Suspect]
     Indication: DEPRESSION
     Dosage: 300 MG 1X PER 1 DAY, ORAL
     Route: 048
     Dates: end: 20060322
  2. EFFEXOR XR [Suspect]
     Indication: DEPRESSION
     Dosage: 300 MG 1X PER 1 DAY, ORAL
     Route: 048
     Dates: start: 20060325
  3. MIRALAX [Concomitant]
  4. PREVACID [Concomitant]

REACTIONS (6)
  - DRUG WITHDRAWAL SYNDROME [None]
  - FAECALOMA [None]
  - FEELING ABNORMAL [None]
  - PANIC ATTACK [None]
  - SMALL INTESTINAL OBSTRUCTION [None]
  - TEARFULNESS [None]
